FAERS Safety Report 13546801 (Version 1)
Quarter: 2017Q2

REPORT INFORMATION
  Report Type: Spontaneous
  Country: US (occurrence: US)
  Receive Date: 20170515
  Receipt Date: 20170515
  Transmission Date: 20170830
  Serious: Yes (Life-Threatening, Hospitalization, Disabling, Other)
  Sender: FDA-Public Use
  Company Number: None

PATIENT
  Age: 28 Year
  Sex: Male
  Weight: 72 kg

DRUGS (5)
  1. HYDROCORTISONE. [Concomitant]
     Active Substance: HYDROCORTISONE
  2. TESTOSTERONE CREAM [Concomitant]
     Active Substance: TESTOSTERONE
  3. PREGNENOLONE [Concomitant]
     Active Substance: PREGNENOLONE
  4. T3 [Concomitant]
     Active Substance: LIOTHYRONINE SODIUM
  5. PROPECIA [Suspect]
     Active Substance: FINASTERIDE
     Indication: ALOPECIA
     Dosage: ?          QUANTITY:1 TABLET(S);?
     Route: 048
     Dates: start: 20161101, end: 20161116

REACTIONS (12)
  - Libido decreased [None]
  - Headache [None]
  - Impaired work ability [None]
  - Anxiety [None]
  - Depression [None]
  - Impaired self-care [None]
  - Erectile dysfunction [None]
  - Organic erectile dysfunction [None]
  - Suicidal ideation [None]
  - Depersonalisation/derealisation disorder [None]
  - Brain injury [None]
  - Fatigue [None]

NARRATIVE: CASE EVENT DATE: 20161210
